FAERS Safety Report 13051089 (Version 1)
Quarter: 2016Q4

REPORT INFORMATION
  Report Type: Spontaneous
  Country: US (occurrence: US)
  Receive Date: 20161221
  Receipt Date: 20161221
  Transmission Date: 20170207
  Serious: Yes (Other)
  Sender: FDA-Public Use
  Company Number: US-IMPAX LABORATORIES, INC-2016-IPXL-02388

PATIENT
  Age: 15 Year
  Sex: Male

DRUGS (8)
  1. KETAMINE [Suspect]
     Active Substance: KETAMINE
     Indication: STATUS ASTHMATICUS
     Dosage: UNK
     Route: 065
  2. TERBUTALINE [Concomitant]
     Active Substance: TERBUTALINE
     Indication: STATUS ASTHMATICUS
     Dosage: UNK, CONTINUOUS
     Route: 065
  3. DUONEB [Concomitant]
     Active Substance: ALBUTEROL SULFATE\IPRATROPIUM BROMIDE
     Indication: STATUS ASTHMATICUS
     Dosage: UNK
     Route: 065
  4. SOLU-MEDROL [Concomitant]
     Active Substance: METHYLPREDNISOLONE SODIUM SUCCINATE
     Indication: STATUS ASTHMATICUS
     Dosage: UNK
     Route: 065
  5. MAGNESIUM [Concomitant]
     Active Substance: MAGNESIUM
     Indication: PRODUCT USED FOR UNKNOWN INDICATION
     Dosage: UNK, CONTINUOUS INFUSIONS
     Route: 065
  6. ALBUTEROL. [Concomitant]
     Active Substance: ALBUTEROL
     Indication: STATUS ASTHMATICUS
     Dosage: UNK, CONTINUOUS
     Route: 065
  7. ADRENACLICK [Suspect]
     Active Substance: EPINEPHRINE
     Indication: STATUS ASTHMATICUS
     Dosage: UNK
     Route: 065
  8. ADRENACLICK [Suspect]
     Active Substance: EPINEPHRINE
     Indication: HAEMODYNAMIC INSTABILITY
     Dosage: UNK, CONTINUOUS INFUSIONS
     Route: 065

REACTIONS (3)
  - Electrocardiogram ST segment depression [Unknown]
  - Myocardial ischaemia [Unknown]
  - Hypertension [Unknown]
